FAERS Safety Report 6243540-5 (Version None)
Quarter: 2009Q2

REPORT INFORMATION
  Report Type: 
  Country: None (occurrence: None)
  Receive Date: 20090624
  Receipt Date: 20090618
  Transmission Date: 20091009
  Serious: Yes (Other)
  Sender: FDA-Public Use
  Company Number: PHEH2009US06447

PATIENT

DRUGS (1)
  1. GLEEVEC [Suspect]

REACTIONS (2)
  - FOOT OPERATION [None]
  - IMPAIRED HEALING [None]
